FAERS Safety Report 25835819 (Version 1)
Quarter: 2025Q3

REPORT INFORMATION
  Report Type: Report from Study
  Country: CA (occurrence: CA)
  Receive Date: 20250923
  Receipt Date: 20250923
  Transmission Date: 20251021
  Serious: Yes (Other)
  Sender: ABBVIE
  Company Number: CA-ABBVIE-6465602

PATIENT
  Age: 56 Year
  Sex: Male

DRUGS (1)
  1. RINVOQ [Suspect]
     Active Substance: UPADACITINIB
     Indication: Crohn^s disease
     Route: 048

REACTIONS (6)
  - Ostomy bag placement [Unknown]
  - Glossodynia [Unknown]
  - Feeding disorder [Unknown]
  - Malnutrition [Unknown]
  - Oral pain [Unknown]
  - Malabsorption [Unknown]

NARRATIVE: CASE EVENT DATE: 20250101
